FAERS Safety Report 8593701-5 (Version None)
Quarter: 2012Q3

REPORT INFORMATION
  Report Type: 
  Country: None (occurrence: None)
  Receive Date: 20120814
  Receipt Date: 20120731
  Transmission Date: 20120928
  Serious: No
  Sender: FDA-Public Use
  Company Number: US-ASTRAZENECA-2012SE51911

PATIENT
  Age: 62 Year
  Sex: Female

DRUGS (9)
  1. FLUNISOLIDE [Concomitant]
  2. M.V.I. [Concomitant]
  3. MENOPAUSE ESSENTIAL [Concomitant]
  4. COLLAGEN [Concomitant]
  5. PRAVASTATIN [Concomitant]
  6. FISH OIL [Concomitant]
  7. LYSINE [Concomitant]
  8. NEXIUM [Suspect]
     Route: 048
  9. CALCIUM WITH VITAMIN D [Concomitant]

REACTIONS (2)
  - GASTROOESOPHAGEAL REFLUX DISEASE [None]
  - BARRETT'S OESOPHAGUS [None]
